FAERS Safety Report 13141711 (Version 1)
Quarter: 2017Q1

REPORT INFORMATION
  Report Type: Report from Study
  Country: US (occurrence: US)
  Receive Date: 20170123
  Receipt Date: 20170123
  Transmission Date: 20170428
  Serious: Yes (Hospitalization, Other)
  Sender: FDA-Public Use
  Company Number: US-APOPHARMA-2017AP005895

PATIENT
  Sex: Male
  Weight: 71 kg

DRUGS (4)
  1. LUPRON DEPOT-PED [Concomitant]
     Active Substance: LEUPROLIDE ACETATE
     Indication: PRODUCT USED FOR UNKNOWN INDICATION
     Dosage: UNK, UNKNOWN
     Route: 065
  2. FUROSEMIDE. [Concomitant]
     Active Substance: FUROSEMIDE
     Indication: PRODUCT USED FOR UNKNOWN INDICATION
     Dosage: UNK, UNKNOWN
     Route: 065
  3. PREDNISONE. [Concomitant]
     Active Substance: PREDNISONE
     Indication: PRODUCT USED FOR UNKNOWN INDICATION
     Dosage: UNK, UNKNOWN
     Route: 065
  4. FERRIPROX [Suspect]
     Active Substance: DEFERIPRONE
     Indication: MYELODYSPLASTIC SYNDROME
     Dosage: 7 MG/KG, TID
     Route: 048
     Dates: start: 20130321

REACTIONS (7)
  - Osteonecrosis of jaw [Recovering/Resolving]
  - Decreased appetite [Unknown]
  - Hospitalisation [Unknown]
  - Nausea [Recovering/Resolving]
  - Dysgeusia [Unknown]
  - Weight decreased [Recovering/Resolving]
  - Parosmia [Recovering/Resolving]
